FAERS Safety Report 12059915 (Version 1)
Quarter: 2016Q1

REPORT INFORMATION
  Report Type: Report from Study
  Country: CA (occurrence: CA)
  Receive Date: 20160210
  Receipt Date: 20160210
  Transmission Date: 20160526
  Serious: Yes (Other)
  Sender: FDA-Public Use
  Company Number: CA-SA-2016SA019049

PATIENT
  Age: 17 Year
  Sex: Male
  Weight: 63 kg

DRUGS (4)
  1. CAMPATH [Suspect]
     Active Substance: ALEMTUZUMAB
     Indication: CHEMOTHERAPY
     Route: 065
     Dates: start: 20150410
  2. CAMPATH [Suspect]
     Active Substance: ALEMTUZUMAB
     Indication: CHEMOTHERAPY
     Route: 065
     Dates: end: 20150606
  3. CAMPATH [Suspect]
     Active Substance: ALEMTUZUMAB
     Indication: CHEMOTHERAPY
     Route: 065
     Dates: start: 20150408, end: 20150409
  4. CAMPATH [Suspect]
     Active Substance: ALEMTUZUMAB
     Indication: CHEMOTHERAPY
     Route: 065

REACTIONS (5)
  - Pyrexia [Recovered/Resolved]
  - Acne [Recovered/Resolved]
  - Myalgia [Recovered/Resolved]
  - Chills [Recovered/Resolved]
  - Atypical mycobacterial pneumonia [Recovered/Resolved]

NARRATIVE: CASE EVENT DATE: 2015
